FAERS Safety Report 5006924-9 (Version None)
Quarter: 2006Q2

REPORT INFORMATION
  Report Type: 
  Country: None (occurrence: None)
  Receive Date: 20060517
  Receipt Date: 20060509
  Transmission Date: 20061013
  Serious: Yes (Other)
  Sender: FDA-Public Use
  Company Number: LTI2006A00098

PATIENT
  Age: 80 Year
  Sex: Male

DRUGS (7)
  1. ACTOS [Suspect]
     Indication: DIABETES MELLITUS NON-INSULIN-DEPENDENT
     Dosage: 30 MG (30 MG, 1 IN 1 D), ORAL
     Route: 048
     Dates: start: 20040301, end: 20051219
  2. ACTOS [Suspect]
     Indication: DIABETES MELLITUS NON-INSULIN-DEPENDENT
     Dosage: 15 MG (15 MG, 1 IN 1 D), ORAL
     Route: 048
     Dates: start: 20040401, end: 20051219
  3. DIAMICRON (GLICLAZIDE) [Concomitant]
  4. PLAVIX [Concomitant]
  5. ATORVASTATIN CALCIUM [Concomitant]
  6. ALLOPURINOL [Concomitant]
  7. ZESTORETIC [Concomitant]

REACTIONS (13)
  - ACUTE PULMONARY OEDEMA [None]
  - BUNDLE BRANCH BLOCK RIGHT [None]
  - CARDIAC FAILURE [None]
  - CARDIOMEGALY [None]
  - DYSPNOEA EXERTIONAL [None]
  - EXTRASYSTOLES [None]
  - OEDEMA PERIPHERAL [None]
  - PLEURAL EFFUSION [None]
  - PULMONARY HYPERTENSION [None]
  - PULMONARY VASCULAR DISORDER [None]
  - RALES [None]
  - VENTRICULAR HYPERTROPHY [None]
  - WEIGHT INCREASED [None]
